FAERS Safety Report 9126620 (Version 1)
Quarter: 2013Q1

REPORT INFORMATION
  Report Type: Spontaneous
  Country: ES (occurrence: ES)
  Receive Date: 20130228
  Receipt Date: 20130228
  Transmission Date: 20140127
  Serious: Yes (Hospitalization)
  Sender: FDA-Public Use
  Company Number: ES-JNJFOC-20130207780

PATIENT
  Age: 92 Year
  Sex: Female

DRUGS (6)
  1. DUROGESIC [Suspect]
     Indication: PAIN
     Route: 062
     Dates: start: 201203, end: 201206
  2. LORAZEPAM [Interacting]
     Indication: INSOMNIA
     Route: 048
     Dates: start: 201105, end: 20120628
  3. LOSARTAN POTASSIUM [Concomitant]
     Indication: HYPERTENSION
     Route: 065
     Dates: start: 2008, end: 20120628
  4. PARACETAMOL [Concomitant]
     Indication: PAIN
     Route: 048
  5. FUROSEMIDE [Concomitant]
     Indication: CARDIAC FAILURE
     Route: 065
     Dates: start: 20120625
  6. METHYLPREDNISOLONE [Concomitant]
     Indication: BRONCHOSPASM
     Route: 065
     Dates: start: 20120625

REACTIONS (4)
  - Cognitive disorder [Recovered/Resolved]
  - Respiratory depression [Recovered/Resolved]
  - Drug interaction [Recovered/Resolved]
  - Somnolence [Unknown]
